FAERS Safety Report 20255625 (Version 1)
Quarter: 2021Q4

REPORT INFORMATION
  Report Type: Spontaneous
  Country: CA (occurrence: CA)
  Receive Date: 20211230
  Receipt Date: 20211230
  Transmission Date: 20220303
  Serious: Yes (Other)
  Sender: FDA-Public Use
  Company Number: None

PATIENT
  Age: 37 Year
  Sex: Male
  Weight: 112 kg

DRUGS (3)
  1. METHOTREXATE [Suspect]
     Active Substance: METHOTREXATE
     Indication: Product used for unknown indication
     Dosage: 1 EVERY 1 WEEKS
     Route: 065
  2. BUDESONIDE [Concomitant]
     Active Substance: BUDESONIDE
     Dosage: EVERY 1 DAYS
  3. ENTYVIO [Concomitant]
     Active Substance: VEDOLIZUMAB
     Dosage: INFUSION? EVERY 1 DAYS
     Route: 042

REACTIONS (2)
  - Crohn^s disease [Unknown]
  - Loss of personal independence in daily activities [Unknown]
